FAERS Safety Report 11042874 (Version 1)
Quarter: 2015Q2

REPORT INFORMATION
  Report Type: Spontaneous
  Country: CA (occurrence: CA)
  Receive Date: 20150417
  Receipt Date: 20150417
  Transmission Date: 20150821
  Serious: Yes (Hospitalization)
  Sender: FDA-Public Use
  Company Number: CA-ROCHE-1562810

PATIENT
  Age: 51 Year
  Sex: Female

DRUGS (2)
  1. NAPROXEN. [Suspect]
     Active Substance: NAPROXEN
     Indication: PRODUCT USED FOR UNKNOWN INDICATION
     Route: 065
  2. HUMIRA [Suspect]
     Active Substance: ADALIMUMAB
     Indication: PRODUCT USED FOR UNKNOWN INDICATION
     Route: 058

REACTIONS (7)
  - Self injurious behaviour [Unknown]
  - Somnolence [Unknown]
  - Depressed mood [Unknown]
  - Psychomotor hyperactivity [Unknown]
  - Fatigue [Unknown]
  - Euphoric mood [Unknown]
  - Swelling [Unknown]
